FAERS Safety Report 9955935 (Version 1)
Quarter: 2014Q1

REPORT INFORMATION
  Report Type: Spontaneous
  Country: US (occurrence: US)
  Receive Date: 20140304
  Receipt Date: 20140304
  Transmission Date: 20141002
  Serious: Yes (Other)
  Sender: FDA-Public Use
  Company Number: US-ABBVIE-13P-163-1090228-00

PATIENT
  Sex: 0

DRUGS (1)
  1. HUMIRA [Suspect]
     Indication: PRODUCT USED FOR UNKNOWN INDICATION

REACTIONS (10)
  - Foot operation [Unknown]
  - Myocardial infarction [Unknown]
  - Acne [Unknown]
  - Skin exfoliation [Unknown]
  - Pruritus [Unknown]
  - Pain of skin [Unknown]
  - Fatigue [Unknown]
  - Pain [Unknown]
  - Wound [Unknown]
  - Erythema [Unknown]
